FAERS Safety Report 18115396 (Version 1)
Quarter: 2020Q3

REPORT INFORMATION
  Report Type: Report from Study
  Country: MA (occurrence: MA)
  Receive Date: 20200805
  Receipt Date: 20200805
  Transmission Date: 20201103
  Serious: Yes (Death)
  Sender: FDA-Public Use
  Company Number: NVSC2020MA189130

PATIENT
  Sex: Female

DRUGS (1)
  1. TYKERB [Suspect]
     Active Substance: LAPATINIB DITOSYLATE
     Indication: BREAST CANCER
     Dosage: 250 MG
     Route: 048
     Dates: start: 20200618

REACTIONS (9)
  - Death [Fatal]
  - Fatigue [Unknown]
  - Pain [Unknown]
  - Blood glucose increased [Unknown]
  - Vomiting [Unknown]
  - Eating disorder [Unknown]
  - Asthenia [Unknown]
  - Dyspnoea [Unknown]
  - Nausea [Unknown]
